FAERS Safety Report 7474288-7 (Version None)
Quarter: 2011Q2

REPORT INFORMATION
  Report Type: 
  Country: None (occurrence: None)
  Receive Date: 20110511
  Receipt Date: 20110502
  Transmission Date: 20111010
  Serious: Yes (Other)
  Sender: FDA-Public Use
  Company Number: BR-AMGEN-BRASP2011014661

PATIENT
  Age: 56 Year
  Sex: Female
  Weight: 68.5 kg

DRUGS (7)
  1. CHLOROQUINE [Concomitant]
     Dosage: 50 MG, 2 STRENGTH
  2. MELOXICAM [Concomitant]
     Dosage: 15 MG, UNK
  3. FLUOXETINE [Concomitant]
     Dosage: 20 MG, UNK
  4. ENBREL [Suspect]
     Indication: RHEUMATOID ARTHRITIS
     Dosage: 50 MG, QWK
     Route: 058
     Dates: start: 20100619
  5. OMEPRAZOLE [Concomitant]
     Indication: GASTRIC DISORDER
     Dosage: UNK
     Dates: start: 20010101
  6. PURAN T4 [Concomitant]
     Indication: HYPOTHYROIDISM
     Dosage: 125 MG, UNK
     Dates: start: 20080101
  7. ACETAMINOPHEN [Concomitant]
     Dosage: 750 MG, UNK

REACTIONS (4)
  - FORMICATION [None]
  - DIABETES MELLITUS [None]
  - NEURALGIA [None]
  - ARTHRALGIA [None]
